FAERS Safety Report 5174340-5 (Version None)
Quarter: 2006Q4

REPORT INFORMATION
  Report Type: 
  Country: None (occurrence: None)
  Receive Date: 20061214
  Receipt Date: 20061129
  Transmission Date: 20070319
  Serious: Yes (Other)
  Sender: FDA-Public Use
  Company Number: US-ELI_LILLY_AND_COMPANY-US200611005390

PATIENT
  Age: 46 Year
  Sex: Male

DRUGS (12)
  1. ZYPREXA [Suspect]
     Indication: MENTAL DISORDER DUE TO A GENERAL MEDICAL CONDITION
     Dosage: 30 MG, DAILY (1/D)
     Dates: start: 20000101
  2. ATENOLOL [Concomitant]
     Indication: HYPERTENSION
     Dosage: 50 MG, DAILY (1/D)
  3. ASPIRIN [Concomitant]
     Dosage: 81 MG, DAILY (1/D)
  4. CLONIDINE [Concomitant]
     Indication: HYPERTENSION
     Dosage: 0.1 MG, DAILY (1/D)
  5. COUMADIN [Concomitant]
     Dosage: 1 MG, DAILY (1/D)
  6. LISINOPRIL [Concomitant]
     Indication: HYPERTENSION
     Dosage: 2.5 MG, DAILY (1/D)
  7. LORAZEPAM [Concomitant]
     Indication: AGITATION
     Dosage: 1 MG, 3/D
  8. NITRGLYCERIN TRANSDERMAL SYSTEM [Concomitant]
     Dosage: 0.2 MG, 2/D
     Route: 061
  9. TYLENOL /USA/ [Concomitant]
     Dosage: UNK UNK, AS NEEDED
  10. VICODIN [Concomitant]
     Indication: PAIN
     Dosage: UNK UNK, AS NEEDED
  11. LASIX [Concomitant]
     Dosage: 60 MG, DAILY (1/D)
  12. FLUOXETINE                              /N/A/ [Concomitant]
     Dosage: 20 MG, DAILY (1/D)

REACTIONS (5)
  - HAEMATOCRIT DECREASED [None]
  - HAEMOGLOBIN DECREASED [None]
  - PRESCRIBED OVERDOSE [None]
  - RED BLOOD CELL COUNT DECREASED [None]
  - WHITE BLOOD CELL COUNT DECREASED [None]
